FAERS Safety Report 4945191-9 (Version None)
Quarter: 2006Q1

REPORT INFORMATION
  Report Type: 
  Country: None (occurrence: None)
  Receive Date: 20060316
  Receipt Date: 20060307
  Transmission Date: 20060701
  Serious: Yes (Other)
  Sender: FDA-Public Use
  Company Number: PHBS2006CH03602

PATIENT
  Age: 50 Year
  Sex: Female

DRUGS (5)
  1. CLOZAPINE [Suspect]
     Indication: PSYCHOTIC DISORDER DUE TO A GENERAL MEDICAL CONDITION
     Dosage: 75 MG/D
  2. CLOZAPINE [Suspect]
     Dosage: 62.5 MG/D
  3. FLUVOXAMINE MALEATE [Concomitant]
     Dosage: 150 MG/D
  4. VALPROATE SODIUM [Concomitant]
     Indication: EPILEPSY
     Dosage: 1.5 G/D
  5. NICOTINE REPLACEMENT THERAPY [Concomitant]
     Route: 062

REACTIONS (4)
  - BRONCHITIS [None]
  - C-REACTIVE PROTEIN INCREASED [None]
  - DRUG LEVEL INCREASED [None]
  - FATIGUE [None]
